FAERS Safety Report 24420736 (Version 3)
Quarter: 2024Q4

REPORT INFORMATION
  Report Type: Report from Study
  Country: US (occurrence: US)
  Receive Date: 20241010
  Receipt Date: 20241022
  Transmission Date: 20250115
  Serious: Yes (Hospitalization)
  Sender: ABBVIE
  Company Number: US-ABBVIE-5956518

PATIENT
  Sex: Female

DRUGS (1)
  1. CREON [Suspect]
     Active Substance: PANCRELIPASE AMYLASE\PANCRELIPASE LIPASE\PANCRELIPASE PROTEASE
     Indication: Pancreatic carcinoma
     Dosage: DOSAGE: 12000 UNIT FORM STRENGTH: 12000 UNIT?2 CAPS EACH MEAL AND 1 CAP EACH MEAL?LAST ADMINISTAR...
     Route: 048
     Dates: start: 2024

REACTIONS (6)
  - Lung disorder [Unknown]
  - Hypophagia [Unknown]
  - Neoplasm malignant [Unknown]
  - Autoimmune disorder [Unknown]
  - Illness [Unknown]
  - Rheumatoid arthritis [Unknown]

NARRATIVE: CASE EVENT DATE: 20240101
